FAERS Safety Report 9661258 (Version 3)
Quarter: 2013Q4

REPORT INFORMATION
  Report Type: Spontaneous
  Country: DE (occurrence: DE)
  Receive Date: 20131031
  Receipt Date: 20131216
  Transmission Date: 20140711
  Serious: Yes (Death)
  Sender: FDA-Public Use
  Company Number: DE-CELGENEUS-062-21880-13104046

PATIENT
  Age: 55 Year
  Sex: Female
  Weight: 55 kg

DRUGS (3)
  1. REVLIMID [Suspect]
     Indication: PRODUCT USED FOR UNKNOWN INDICATION
     Route: 048
     Dates: start: 20130604
  2. TAVANIC [Concomitant]
     Indication: PROPHYLAXIS
     Route: 065
     Dates: end: 20130706
  3. TAVANIC [Concomitant]
     Dosage: .5 TABLET
     Route: 065

REACTIONS (3)
  - Neutropenic sepsis [Fatal]
  - Plasma cell myeloma [Fatal]
  - Infection [Unknown]
